FAERS Safety Report 23197638 (Version 3)
Quarter: 2023Q4

REPORT INFORMATION
  Report Type: Spontaneous
  Country: CA (occurrence: CA)
  Receive Date: 20231117
  Receipt Date: 20231213
  Transmission Date: 20240110
  Serious: Yes (Hospitalization, Other)
  Sender: FDA-Public Use
  Company Number: CA-INCYTE CORPORATION-2023IN011859

PATIENT

DRUGS (4)
  1. TAFASITAMAB [Suspect]
     Active Substance: TAFASITAMAB
     Indication: Plasmablastic lymphoma
     Dosage: 12MG/KG - ADMINISTER THE INFUSION ON DAYS 1 AND 15 OF EACH CYCLE
     Route: 042
     Dates: start: 20220504
  2. TAFASITAMAB [Suspect]
     Active Substance: TAFASITAMAB
     Dosage: 12MG/KG - CYCLE 18 08-SEP-2023 INFUSION ADMINISTER THE INFUSION ON DAYS 1 AND 15 OF EACH CYCLE
     Route: 042
     Dates: start: 20230908
  3. TAFASITAMAB [Suspect]
     Active Substance: TAFASITAMAB
     Dosage: 200 MILLIGRAM, AS PER THE PM SCHEDULE
     Route: 042
     Dates: start: 20220504
  4. TYLENOL [Concomitant]
     Active Substance: ACETAMINOPHEN
     Indication: Antipyresis
     Dosage: 650 MILLIGRAM
     Route: 065

REACTIONS (2)
  - Neoplasm malignant [Unknown]
  - Off label use [Unknown]

NARRATIVE: CASE EVENT DATE: 20220504
